FAERS Safety Report 21624947 (Version 1)
Quarter: 2022Q4

REPORT INFORMATION
  Report Type: Spontaneous
  Country: PT (occurrence: PT)
  Receive Date: 20221122
  Receipt Date: 20221122
  Transmission Date: 20230112
  Serious: Yes (Hospitalization, Other)
  Sender: FDA-Public Use
  Company Number: PT-MYLANLABS-2022M1119713

PATIENT
  Age: 84 Year
  Sex: Male

DRUGS (1)
  1. AMOXICILLIN\CLAVULANIC ACID [Suspect]
     Active Substance: AMOXICILLIN\CLAVULANIC ACID
     Indication: Aortic aneurysm
     Dosage: UNK
     Route: 065

REACTIONS (3)
  - Bacteraemia [Unknown]
  - Off label use [Unknown]
  - Drug ineffective [Unknown]
